FAERS Safety Report 10741731 (Version 1)
Quarter: 2015Q1

REPORT INFORMATION
  Report Type: Spontaneous
  Country: US (occurrence: US)
  Receive Date: 20150127
  Receipt Date: 20150127
  Transmission Date: 20150721
  Serious: Yes (Other)
  Sender: FDA-Public Use
  Company Number: US-ASTRAZENECA-2015SE07789

PATIENT
  Sex: Female

DRUGS (15)
  1. JANUVIA [Suspect]
     Active Substance: SITAGLIPTIN PHOSPHATE
     Indication: TYPE 2 DIABETES MELLITUS
     Dosage: UNK
     Route: 065
     Dates: start: 200903
  2. CHLORHEXIDINE [Concomitant]
     Active Substance: CHLORHEXIDINE
  3. CYMBALTA [Concomitant]
     Active Substance: DULOXETINE HYDROCHLORIDE
  4. OXCARBAZEPINE. [Concomitant]
     Active Substance: OXCARBAZEPINE
  5. LYRICA [Concomitant]
     Active Substance: PREGABALIN
  6. VITAMIN D3 [Concomitant]
     Active Substance: CHOLECALCIFEROL
  7. BYETTA [Suspect]
     Active Substance: EXENATIDE
     Indication: TYPE 2 DIABETES MELLITUS
     Route: 065
     Dates: start: 200901
  8. LANTUS [Concomitant]
     Active Substance: INSULIN GLARGINE
  9. NOVOLOG [Concomitant]
     Active Substance: INSULIN ASPART
  10. METHOCARBAMOL. [Concomitant]
     Active Substance: METHOCARBAMOL
  11. TORSEMIDE. [Concomitant]
     Active Substance: TORSEMIDE
  12. WARFARIN [Concomitant]
     Active Substance: WARFARIN
  13. PRAVASTATIN [Concomitant]
     Active Substance: PRAVASTATIN\PRAVASTATIN SODIUM
  14. PERCOCET [Concomitant]
     Active Substance: ACETAMINOPHEN\OXYCODONE HYDROCHLORIDE
  15. CARDIZEM CD [Concomitant]
     Active Substance: DILTIAZEM HYDROCHLORIDE

REACTIONS (1)
  - Papillary thyroid cancer [Unknown]

NARRATIVE: CASE EVENT DATE: 201401
